FAERS Safety Report 5196596-5 (Version None)
Quarter: 2007Q1

REPORT INFORMATION
  Report Type: 
  Country: None (occurrence: None)
  Receive Date: 20070103
  Receipt Date: 20061222
  Transmission Date: 20070707
  Serious: Yes (Other)
  Sender: FDA-Public Use
  Company Number: PHBS2006JP19748

PATIENT
  Age: 54 Year
  Sex: Female

DRUGS (1)
  1. AREDIA [Suspect]
     Indication: BREAST CANCER
     Route: 065

REACTIONS (2)
  - OSTEOMYELITIS [None]
  - OSTEONECROSIS [None]
